FAERS Safety Report 13553355 (Version 9)
Quarter: 2018Q2

REPORT INFORMATION
  Report Type: Spontaneous
  Country: US (occurrence: US)
  Receive Date: 20170517
  Receipt Date: 20180503
  Transmission Date: 20180711
  Serious: Yes (Death, Hospitalization, Other)
  Sender: FDA-Public Use
  Company Number: US-AMGEN-USASP2017071146

PATIENT
  Age: 64 Year
  Sex: Female
  Weight: 100 kg

DRUGS (68)
  1. FOLINIC ACID [Suspect]
     Active Substance: LEUCOVORIN
     Indication: PANCREATIC CARCINOMA STAGE IV
     Dosage: UNK
     Route: 065
     Dates: start: 20170501, end: 2017
  2. HYDROCHLOROTHIAZIDE W/LISINOPRIL [Concomitant]
     Active Substance: HYDROCHLOROTHIAZIDE\LISINOPRIL
     Dosage: 1 DF, QD (12.5 MG- 10 MG)
     Route: 048
  3. MIRTAZAPINE. [Concomitant]
     Active Substance: MIRTAZAPINE
     Dosage: 1 DF, QHS
     Route: 048
  4. ACETAMINOPHEN. [Concomitant]
     Active Substance: ACETAMINOPHEN
     Dosage: 2 DF, Q4H, PRN
     Route: 048
  5. NORMAL SALINE [Concomitant]
     Active Substance: SODIUM CHLORIDE
     Dosage: 10 ML, UNK (QSHIFT)
     Route: 042
  6. PROTONIX [Concomitant]
     Active Substance: PANTOPRAZOLE SODIUM
     Dosage: 1 DF, QD
     Route: 048
  7. MAGNESIUM SULFATE. [Concomitant]
     Active Substance: MAGNESIUM SULFATE
     Dosage: UNK, 2G/ 50 ML PREMIXED, ONCE
     Route: 042
  8. TRANSDERM SCOP [Concomitant]
     Active Substance: SCOPOLAMINE
     Dosage: 1 DF, UNK, Q72HR
     Route: 062
  9. ZOCOR [Concomitant]
     Active Substance: SIMVASTATIN
     Dosage: 1 DF, QHS
     Route: 048
  10. ENOXAPARIN [Concomitant]
     Active Substance: ENOXAPARIN
     Dosage: UNK UNK, QD (40 MG 0.4 ML)
     Route: 058
  11. 5-FU [Suspect]
     Active Substance: FLUOROURACIL
     Indication: PANCREATIC CARCINOMA STAGE IV
     Dosage: 4800 MG, OVER 46 HOURS DAY 1 Q 14 DAYS
     Route: 065
     Dates: start: 20170501, end: 2017
  12. IRINOTECAN [Suspect]
     Active Substance: IRINOTECAN
     Indication: PANCREATIC CARCINOMA STAGE IV
     Dosage: 360 MG, IV OVER 90 MIN DAY 1, CONCURRENT WITH LAST 90 MIN OF LEUCOVORIN DAY 1 Q 14 DAYS
     Route: 042
     Dates: start: 20170501, end: 2017
  13. ELOXATIN [Suspect]
     Active Substance: OXALIPLATIN
     Indication: PANCREATIC CARCINOMA STAGE IV
     Dosage: 170 MG, IV OVER 2 HRS PRIOR TO LEUCOVORIN DAY 1 Q 14 DAYS
     Route: 042
     Dates: start: 20170501, end: 2017
  14. DULCOLAX NOS [Concomitant]
     Active Substance: BISACODYL OR DOCUSATE SODIUM
     Dosage: 1 DF, BID, PRN
     Route: 048
  15. LANTUS [Concomitant]
     Active Substance: INSULIN GLARGINE
     Dosage: 26 UNIT, QHS
     Route: 058
  16. LANTUS [Concomitant]
     Active Substance: INSULIN GLARGINE
     Dosage: 26 UNIT, QHS
     Route: 058
  17. NORCO [Concomitant]
     Active Substance: ACETAMINOPHEN\HYDROCODONE BITARTRATE
     Dosage: 1 DF, Q6H, PRN (5 MG- 325 MG)
     Route: 048
  18. PENTOXIFYLLINE. [Concomitant]
     Active Substance: PENTOXIFYLLINE
     Dosage: 1 DF, TID
     Route: 048
  19. TRADJENTA [Concomitant]
     Active Substance: LINAGLIPTIN
     Dosage: 1 DF, QD
     Route: 048
  20. ASPIRIN. [Concomitant]
     Active Substance: ASPIRIN
     Dosage: 1 DF, QD
     Route: 048
  21. GLUCAGON. [Concomitant]
     Active Substance: GLUCAGON
     Dosage: 1 ML, AS NECESSARY
     Route: 030
  22. ZOFRAN [Concomitant]
     Active Substance: ONDANSETRON HYDROCHLORIDE
     Dosage: 8 MG, Q8H (TABLET), PRN
     Route: 048
  23. ROXANOL [Concomitant]
     Active Substance: MORPHINE SULFATE
     Dosage: 0.5 ML, Q2H, PRN
     Route: 060
  24. FENTANYL. [Concomitant]
     Active Substance: FENTANYL
     Dosage: 25 MCG/HR, Q72HR
     Route: 061
  25. FAMOTIDINE. [Concomitant]
     Active Substance: FAMOTIDINE
     Dosage: 2 ML, BID
     Route: 042
  26. LORAZEPAM. [Concomitant]
     Active Substance: LORAZEPAM
     Dosage: 1 ML, Q4H
     Route: 042
  27. PALONOSETRON. [Concomitant]
     Active Substance: PALONOSETRON HYDROCHLORIDE
     Dosage: 0.25 MG, DAY 1 Q 14 DAYS
     Route: 042
  28. METOPROLOL SUCCINATE. [Concomitant]
     Active Substance: METOPROLOL SUCCINATE
     Dosage: 1 DF, QD
     Route: 048
  29. ONDANSETRON [Concomitant]
     Active Substance: ONDANSETRON
     Indication: NAUSEA
     Dosage: 2 ML, Q4H, PRN
     Route: 042
  30. POTASSIUM CHLORIDE. [Concomitant]
     Active Substance: POTASSIUM CHLORIDE
     Dosage: UNK 10 MEQ/100 ML
     Route: 042
  31. REMERON [Concomitant]
     Active Substance: MIRTAZAPINE
     Dosage: 1 DF, UNK
     Route: 048
  32. METOPROLOL. [Concomitant]
     Active Substance: METOPROLOL
     Dosage: 25 MG, QD
     Route: 048
  33. EMEND [Concomitant]
     Active Substance: APREPITANT
     Dosage: 150 MG, DAY 1 Q 14 DAYS
     Route: 042
  34. MORPHINE [Concomitant]
     Active Substance: MORPHINE
     Dosage: 0.5 ML, Q4H, PRN
     Route: 042
  35. TYLENOL [Concomitant]
     Active Substance: ACETAMINOPHEN
     Dosage: 2 DF, Q4H, PRN
     Route: 048
  36. PROCHLORPERAZINE. [Concomitant]
     Active Substance: PROCHLORPERAZINE
     Dosage: 1 DF, BID
     Route: 048
  37. SCOPOLAMINE [Concomitant]
     Active Substance: SCOPOLAMINE
     Dosage: 1.5 MG, UNK, Q72HR
     Route: 061
  38. PROPOFOL. [Concomitant]
     Active Substance: PROPOFOL
     Dosage: UNK UNK, AS NECESSARY (1000 MG/100 ML)
     Route: 042
  39. DEXAMETHASONE. [Concomitant]
     Active Substance: DEXAMETHASONE
     Dosage: 20 MG, DAY 1 Q 14 DAYS
     Route: 042
  40. 5-FU [Suspect]
     Active Substance: FLUOROURACIL
     Dosage: 800 MG, DAY 1 Q 14 DAYS
     Route: 042
  41. LANTUS [Concomitant]
     Active Substance: INSULIN GLARGINE
     Dosage: 32 UNIT, QHS
     Route: 058
  42. OMEPRAZOLE. [Concomitant]
     Active Substance: OMEPRAZOLE
     Dosage: 1 DF, QD
     Route: 048
  43. LEVEMIR [Concomitant]
     Active Substance: INSULIN DETEMIR
     Dosage: 20 UNIT, QHS
     Route: 058
  44. ONDANSETRON [Concomitant]
     Active Substance: ONDANSETRON
     Indication: PROPHYLAXIS
     Dosage: 4 MG, TID (TABLET), PRN
     Route: 048
  45. ZOFRAN [Concomitant]
     Active Substance: ONDANSETRON HYDROCHLORIDE
     Indication: NAUSEA
     Dosage: 2 ML, UNK
     Route: 042
  46. COLACE [Concomitant]
     Active Substance: DOCUSATE SODIUM
     Dosage: 1 DF, BID
     Route: 048
  47. TRENTAL [Concomitant]
     Active Substance: PENTOXIFYLLINE
     Dosage: 1 DF, TID
     Route: 048
  48. MAGNESIUM HYDROXIDE. [Concomitant]
     Active Substance: MAGNESIUM HYDROXIDE
     Dosage: 30 ML, QD, PRN
     Route: 048
  49. SIMVASTATIN. [Concomitant]
     Active Substance: SIMVASTATIN
     Dosage: 1 DF, QHS
     Route: 048
  50. HYDRODIURIL [Concomitant]
     Active Substance: HYDROCHLOROTHIAZIDE
     Dosage: 0.5 DF, QD
     Route: 048
  51. MILK OF MAGNESIA [Concomitant]
     Active Substance: MAGNESIUM HYDROXIDE
     Dosage: 30 ML, QD, PRN
     Route: 048
  52. ROCEPHIN [Concomitant]
     Active Substance: CEFTRIAXONE SODIUM
     Dosage: 1 G, QD (PIGGYBACK)
     Route: 042
  53. SODIUM CHLORIDE. [Concomitant]
     Active Substance: SODIUM CHLORIDE
     Dosage: 1000 ML, UNK
     Route: 042
  54. PRILOSEC [Concomitant]
     Active Substance: OMEPRAZOLE MAGNESIUM
     Dosage: 1 DF, UNK
     Route: 048
  55. NOVOLOG [Concomitant]
     Active Substance: INSULIN ASPART
     Dosage: 100 U/L, TID
     Route: 058
  56. DEXTROSE. [Concomitant]
     Active Substance: DEXTROSE
     Dosage: 50 ML, Q6H, PRN
     Route: 042
  57. ZESTRIL [Concomitant]
     Active Substance: LISINOPRIL
     Dosage: 1 DF, QD
     Route: 048
  58. PLAVIX [Concomitant]
     Active Substance: CLOPIDOGREL BISULFATE
     Dosage: 1 DF, QD
     Route: 048
  59. LOPRESSOR [Concomitant]
     Active Substance: METOPROLOL TARTRATE
     Dosage: 1 DF, QHS
     Route: 048
  60. REGLAN [Concomitant]
     Active Substance: METOCLOPRAMIDE HYDROCHLORIDE
     Dosage: 1 DF, Q12H, PRN
  61. COMPAZINE [Concomitant]
     Active Substance: PROCHLORPERAZINE MALEATE
     Indication: NAUSEA
     Dosage: 10 MG, TID
  62. NEULASTA [Suspect]
     Active Substance: PEGFILGRASTIM
     Indication: PRODUCT USED FOR UNKNOWN INDICATION
     Dosage: 6 MG, DAY 4 THIS CYCLE ONLY
     Route: 058
     Dates: start: 20170504
  63. CIPRO [Concomitant]
     Active Substance: CIPROFLOXACIN HYDROCHLORIDE
     Dosage: 1 DF, BID
     Route: 048
  64. HYDRALAZINE [Concomitant]
     Active Substance: HYDRALAZINE HYDROCHLORIDE
     Dosage: 0.5 ML, Q6H, PRN
     Route: 042
  65. DIFLUCAN [Concomitant]
     Active Substance: FLUCONAZOLE
     Dosage: 1 DF, QD
     Route: 048
  66. VITAMIN D3 [Concomitant]
     Active Substance: CHOLECALCIFEROL
     Dosage: 1 DF, QD
     Route: 048
  67. LEVETIRACETAM. [Concomitant]
     Active Substance: LEVETIRACETAM
     Dosage: 1 DF, BID
     Route: 048
  68. LEUCOVORIN. [Concomitant]
     Active Substance: LEUCOVORIN
     Dosage: 800 MG, IV OVER 2 HRS AFTER OXALIPLATIN DAY 1 Q 14 DAYS; MAY SUBSTITUTE WITH LEVOLEUCOVORIN 200MG/M2
     Route: 042

REACTIONS (31)
  - Seizure [Fatal]
  - Bladder dilatation [Unknown]
  - Metastases to liver [Unknown]
  - Nausea [Unknown]
  - Asthenia [Not Recovered/Not Resolved]
  - Gait inability [Unknown]
  - Malaise [Unknown]
  - Sinusitis [Unknown]
  - Fatigue [Unknown]
  - Pleural effusion [Unknown]
  - Hypokalaemia [Unknown]
  - Hypotension [Unknown]
  - Thrombocytopenia [Unknown]
  - Leukocytosis [Unknown]
  - Diastolic dysfunction [Unknown]
  - Pain [Not Recovered/Not Resolved]
  - Dehydration [Unknown]
  - Oedema peripheral [Unknown]
  - Drug hypersensitivity [Fatal]
  - Dizziness [Unknown]
  - Vomiting [Unknown]
  - Dyspnoea [Unknown]
  - Depressed level of consciousness [Unknown]
  - Anaemia [Unknown]
  - Constipation [Unknown]
  - Cardiac arrest [Fatal]
  - Acute respiratory failure [Fatal]
  - Pulmonary mass [Unknown]
  - Mental disorder [Unknown]
  - Chest pain [Not Recovered/Not Resolved]
  - Hypomagnesaemia [Unknown]

NARRATIVE: CASE EVENT DATE: 2017
